FAERS Safety Report 6020873-9 (Version None)
Quarter: 2008Q4

REPORT INFORMATION
  Report Type: 
  Country: None (occurrence: None)
  Receive Date: 20081229
  Receipt Date: 20081218
  Transmission Date: 20090506
  Serious: Yes (Death)
  Sender: FDA-Public Use
  Company Number: US-JNJFOC-20081205834

PATIENT
  Age: 48 Year
  Sex: Female

DRUGS (12)
  1. TRAMADOL [Suspect]
     Indication: COMPLETED SUICIDE
     Route: 048
  2. BUPROPION HCL [Suspect]
     Indication: COMPLETED SUICIDE
     Route: 048
  3. VENLAFAXINE [Suspect]
     Indication: COMPLETED SUICIDE
     Route: 048
  4. ACETAMINOPHEN AND HYDROCODONE BITARTRATE [Suspect]
     Indication: SUICIDE ATTEMPT
     Route: 048
  5. THIAZOLIDINEDIONE [Suspect]
     Indication: COMPLETED SUICIDE
     Route: 048
  6. COCAINE [Suspect]
     Indication: COMPLETED SUICIDE
     Route: 048
  7. IRBESARTAN [Suspect]
     Indication: COMPLETED SUICIDE
     Route: 048
  8. HYDROCHLOROTHIAZIDE [Suspect]
     Indication: COMPLETED SUICIDE
     Route: 048
  9. DIPHENOXYLATE HCL + ATROPINE SULFATE [Suspect]
     Indication: COMPLETED SUICIDE
     Route: 048
  10. OLANZAPINE [Suspect]
     Indication: COMPLETED SUICIDE
     Route: 048
  11. QUINAPRIL [Suspect]
     Indication: COMPLETED SUICIDE
  12. BENZODIAZEPINE [Suspect]
     Indication: COMPLETED SUICIDE

REACTIONS (2)
  - COMPLETED SUICIDE [None]
  - DRUG TOXICITY [None]
